FAERS Safety Report 5542206-4 (Version None)
Quarter: 2007Q4

REPORT INFORMATION
  Report Type: 
  Country: None (occurrence: None)
  Receive Date: 20071129
  Receipt Date: 20070529
  Transmission Date: 20080405
  Serious: Yes (Other)
  Sender: FDA-Public Use
  Company Number: US200704002724

PATIENT
  Age: 31 Year
  Sex: Female
  Weight: 145.1 kg

DRUGS (1)
  1. ZYPREXA [Suspect]
     Dosage: 7.5 MG
     Dates: start: 20010101

REACTIONS (8)
  - BLOOD CHOLESTEROL INCREASED [None]
  - DIABETES MELLITUS [None]
  - DIABETIC COMA [None]
  - DIABETIC KETOACIDOSIS [None]
  - DRUG EXPOSURE DURING PREGNANCY [None]
  - GLYCOSURIA [None]
  - HYPERGLYCAEMIA [None]
  - PANCREATITIS [None]
